FAERS Safety Report 8514910-7 (Version None)
Quarter: 2012Q3

REPORT INFORMATION
  Report Type: 
  Country: None (occurrence: None)
  Receive Date: 20120711
  Receipt Date: 20120711
  Transmission Date: 20120928
  Serious: Yes (Hospitalization)
  Sender: FDA-Public Use
  Company Number: None

PATIENT
  Age: 80 Year
  Sex: Male
  Weight: 93 kg

DRUGS (6)
  1. ATENOLOL [Concomitant]
  2. GEMFIBROZIL [Concomitant]
  3. TAMSULOSIN HCL [Concomitant]
  4. DEXILANT [Concomitant]
  5. LANTUS [Concomitant]
  6. RIVAROXABAN 20 MG BAYER, JANSSEN [Suspect]
     Indication: ATRIAL FIBRILLATION
     Dosage: 20 MG DAILY ORALLY
     Route: 048
     Dates: start: 20120622, end: 20120628

REACTIONS (2)
  - CEREBRAL HAEMORRHAGE [None]
  - COMMUNICATION DISORDER [None]
